FAERS Safety Report 14669415 (Version 2)
Quarter: 2018Q2

REPORT INFORMATION
  Report Type: Spontaneous
  Country: CH (occurrence: CH)
  Receive Date: 20180322
  Receipt Date: 20180403
  Transmission Date: 20180711
  Serious: Yes (Other)
  Sender: FDA-Public Use
  Company Number: CH-009507513-1803CHE007816

PATIENT
  Sex: Female

DRUGS (2)
  1. IMPLANON [Suspect]
     Active Substance: ETONOGESTREL
     Indication: CONTRACEPTION
     Dosage: 1 DF,IMPLANT IN THE LEFT UPPER ARM MEDIAL
     Route: 058
     Dates: start: 20130502, end: 20160627
  2. IMPLANON [Suspect]
     Active Substance: ETONOGESTREL
     Dosage: 1 IMPLANT, AT THE SAME SPOT
     Route: 058
     Dates: start: 20160627, end: 201803

REACTIONS (2)
  - Metrorrhagia [Unknown]
  - Device embolisation [Recovered/Resolved]
